FAERS Safety Report 9633357 (Version 3)
Quarter: 2014Q1

REPORT INFORMATION
  Report Type: Spontaneous
  Country: US (occurrence: US)
  Receive Date: 20131021
  Receipt Date: 20140210
  Transmission Date: 20141002
  Serious: No
  Sender: FDA-Public Use
  Company Number: US-009507513-1310USA009003

PATIENT
  Age: 29 Year
  Sex: Female
  Weight: 109.3 kg

DRUGS (2)
  1. NEXPLANON [Suspect]
     Dosage: RIGHT ARM
     Dates: start: 20131017, end: 20131017
  2. NEXPLANON [Suspect]
     Dosage: 1 ROD EVERY THREE YEARS
     Route: 059
     Dates: start: 20131017

REACTIONS (3)
  - Device difficult to use [Recovered/Resolved]
  - No adverse event [Unknown]
  - Product quality issue [Unknown]
